FAERS Safety Report 7208105-7 (Version None)
Quarter: 2010Q4

REPORT INFORMATION
  Report Type: 
  Country: None (occurrence: None)
  Receive Date: 20101222
  Receipt Date: 20101206
  Transmission Date: 20110411
  Serious: Yes (Hospitalization)
  Sender: FDA-Public Use
  Company Number: UTC-003046

PATIENT
  Age: 20 Year
  Sex: Female
  Weight: 96 kg

DRUGS (3)
  1. REMODULIN [Suspect]
     Indication: PULMONARY HYPERTENSION
     Dosage: 11101.6 UG/KG (0.765 UG/KG, 1 N 1 MIN),SUBCUTANEOUS
     Route: 058
     Dates: start: 20080712
  2. TRACLEER [Concomitant]
  3. DIURETICS (DIURETICS) [Concomitant]

REACTIONS (1)
  - HAEMOPTYSIS [None]
